FAERS Safety Report 7044458-0 (Version None)
Quarter: 2010Q4

REPORT INFORMATION
  Report Type: 
  Country: None (occurrence: None)
  Receive Date: 20101014
  Receipt Date: 20101005
  Transmission Date: 20110411
  Serious: Yes (Death)
  Sender: FDA-Public Use
  Company Number: JP-WYE-H17957510

PATIENT
  Age: 76 Year
  Sex: Female

DRUGS (10)
  1. ANCARON [Suspect]
     Indication: ATRIAL FIBRILLATION
     Route: 048
     Dates: start: 20100406, end: 20100419
  2. TAKEPRON [Concomitant]
  3. ASPIRIN [Concomitant]
  4. MEROPEN [Concomitant]
  5. AMIODARONE HYDROCHLORIDE [Suspect]
     Indication: VENTRICULAR TACHYCARDIA
     Dosage: LOADING DOSE OF 15 MG/ML AT 3.3 ML/H FROM 05:00 TO 10:00
     Route: 042
     Dates: start: 20100403, end: 20100403
  6. AMIODARONE HYDROCHLORIDE [Suspect]
     Dosage: MAINTENANCE DOSE OF 15 MG/ML AT 1.7 ML/H FROM 10:00 ON 03-APR-2010 TO 04:00 ON 08-APR-2010
     Route: 042
     Dates: start: 20100403, end: 20100408
  7. DOPAMINE HCL [Concomitant]
  8. HANP [Concomitant]
  9. LASIX [Concomitant]
  10. MUCODYNE [Concomitant]

REACTIONS (2)
  - ACUTE RESPIRATORY DISTRESS SYNDROME [None]
  - RESPIRATORY FAILURE [None]
